FAERS Safety Report 10466549 (Version 1)
Quarter: 2014Q3

REPORT INFORMATION
  Report Type: Spontaneous
  Country: SE (occurrence: None)
  Receive Date: 20140918
  Receipt Date: 20140918
  Transmission Date: 20150326
  Serious: Yes (Other)
  Sender: FDA-Public Use
  Company Number: 2014GR_BP006522

PATIENT
  Sex: Male

DRUGS (1)
  1. FINASTERIDE (FINASTERIDE) [Suspect]
     Active Substance: FINASTERIDE
     Indication: HAEMATURIA
     Dosage: NR  UNKNOWN

REACTIONS (2)
  - Off label use [None]
  - Erectile dysfunction [None]
